FAERS Safety Report 12132986 (Version 2)
Quarter: 2016Q2

REPORT INFORMATION
  Report Type: Spontaneous
  Country: US (occurrence: US)
  Receive Date: 20160301
  Receipt Date: 20160401
  Transmission Date: 20160815
  Serious: Yes (Hospitalization, Other)
  Sender: FDA-Public Use
  Company Number: US-JNJFOC-20160104991

PATIENT
  Age: 82 Year
  Sex: Female
  Weight: 67.13 kg

DRUGS (21)
  1. XARELTO [Suspect]
     Active Substance: RIVAROXABAN
     Indication: CEREBROVASCULAR ACCIDENT PROPHYLAXIS
     Route: 048
     Dates: start: 20120430, end: 20130116
  2. VITAMIN C [Concomitant]
     Active Substance: ASCORBIC ACID
  3. LASIX [Concomitant]
     Active Substance: FUROSEMIDE
     Route: 048
  4. PREVACID [Concomitant]
     Active Substance: LANSOPRAZOLE
  5. RITUXAN [Concomitant]
     Active Substance: RITUXIMAB
  6. MUCINEX [Concomitant]
     Active Substance: GUAIFENESIN
  7. E-VITAMIN [Concomitant]
  8. PLAQUENIL [Concomitant]
     Active Substance: HYDROXYCHLOROQUINE SULFATE
  9. DALIRESP [Concomitant]
     Active Substance: ROFLUMILAST
  10. XARELTO [Suspect]
     Active Substance: RIVAROXABAN
     Indication: ATRIAL FIBRILLATION
     Route: 048
     Dates: start: 20120430, end: 20130116
  11. SPIRIVA [Concomitant]
     Active Substance: TIOTROPIUM BROMIDE MONOHYDRATE
  12. CARDIZEM CD [Concomitant]
     Active Substance: DILTIAZEM HYDROCHLORIDE
     Route: 048
  13. ADVAIR HFA [Concomitant]
     Active Substance: FLUTICASONE PROPIONATE\SALMETEROL XINAFOATE
     Dosage: 250/50 PUFF
  14. METOPROLOL SUCCINATE. [Concomitant]
     Active Substance: METOPROLOL SUCCINATE
     Route: 048
  15. ALBUTEROL SULFATE. [Concomitant]
     Active Substance: ALBUTEROL SULFATE
  16. VITAMINS NOS [Concomitant]
     Active Substance: VITAMINS
  17. FERREX [Concomitant]
  18. DUONEB [Concomitant]
     Active Substance: ALBUTEROL SULFATE\IPRATROPIUM BROMIDE
  19. IRON [Concomitant]
     Active Substance: IRON
  20. PREDNISONE. [Concomitant]
     Active Substance: PREDNISONE
  21. FISH OIL OMEGA 3 [Concomitant]

REACTIONS (2)
  - Anaemia [Recovered/Resolved]
  - Gastrointestinal haemorrhage [Recovered/Resolved]

NARRATIVE: CASE EVENT DATE: 20130116
